FAERS Safety Report 8128421-4 (Version None)
Quarter: 2012Q1

REPORT INFORMATION
  Report Type: 
  Country: None (occurrence: None)
  Receive Date: 20120210
  Receipt Date: 20120127
  Transmission Date: 20120608
  Serious: Yes (Other)
  Sender: FDA-Public Use
  Company Number: GB-ROCHE-1034260

PATIENT
  Age: 50 Year
  Sex: Female

DRUGS (1)
  1. LARIAM [Suspect]
     Indication: MALARIA PROPHYLAXIS
     Route: 048
     Dates: start: 20110101, end: 20110101

REACTIONS (9)
  - LETHARGY [None]
  - DIZZINESS [None]
  - MIGRAINE [None]
  - SKIN DISORDER [None]
  - TEARFULNESS [None]
  - ALOPECIA [None]
  - DYSPNOEA [None]
  - HEADACHE [None]
  - ASTHENIA [None]
